FAERS Safety Report 10374737 (Version 1)
Quarter: 2014Q3

REPORT INFORMATION
  Report Type: Spontaneous
  Country: US (occurrence: US)
  Receive Date: 20140811
  Receipt Date: 20140811
  Transmission Date: 20150326
  Serious: Yes (Hospitalization, Other)
  Sender: FDA-Public Use
  Company Number: US-TEVA-499895USA

PATIENT
  Age: 36 Year
  Sex: Female

DRUGS (1)
  1. HYDROXYCHLOROQUINE [Suspect]
     Active Substance: HYDROXYCHLOROQUINE
     Indication: EOSINOPHILIC FASCIITIS
     Dosage: 300 MILLIGRAM DAILY;
     Route: 065

REACTIONS (2)
  - Neutropenia [Recovered/Resolved]
  - Septic shock [Recovered/Resolved]
